FAERS Safety Report 10173452 (Version 1)
Quarter: 2014Q2

REPORT INFORMATION
  Report Type: Spontaneous
  Country: US (occurrence: None)
  Receive Date: 20140514
  Receipt Date: 20140514
  Transmission Date: 20141212
  Serious: Yes (Hospitalization)
  Sender: FDA-Public Use
  Company Number: None

PATIENT
  Age: 81 Year
  Sex: Female

DRUGS (4)
  1. SUCCINYLCHOLINE [Suspect]
     Indication: HYPERKALAEMIA
     Route: 042
     Dates: end: 20140330
  2. ACETAMINOPHEN-CODEINE [Concomitant]
  3. MIDAZOLAM [Concomitant]
  4. SUCCINYCHOLINE [Concomitant]

REACTIONS (5)
  - Aggression [None]
  - Heart rate decreased [None]
  - Blood creatinine increased [None]
  - Hypercalcaemia [None]
  - Loss of consciousness [None]
